FAERS Safety Report 14259625 (Version 1)
Quarter: 2017Q4

REPORT INFORMATION
  Report Type: Not Available
  Country: CH (occurrence: CH)
  Receive Date: 20171207
  Receipt Date: 20171207
  Transmission Date: 20180321
  Serious: Yes (Other)
  Sender: FDA-Public Use
  Company Number: CH-AKORN-74355

PATIENT
  Age: 48 Year
  Sex: Female
  Weight: 55 kg

DRUGS (1)
  1. ZIOPTAN [Suspect]
     Active Substance: TAFLUPROST

REACTIONS (5)
  - Uveitis [Unknown]
  - Corneal erosion [Unknown]
  - Visual impairment [Unknown]
  - Cystoid macular oedema [Unknown]
  - Off label use [Unknown]
